FAERS Safety Report 8135917-8 (Version None)
Quarter: 2012Q1

REPORT INFORMATION
  Report Type: 
  Country: None (occurrence: None)
  Receive Date: 20120210
  Receipt Date: 20120206
  Transmission Date: 20120608
  Serious: Yes (Other)
  Sender: FDA-Public Use
  Company Number: 2012SP006879

PATIENT
  Age: 20 Year
  Sex: Female

DRUGS (1)
  1. IMPLANON [Suspect]
     Indication: CONTRACEPTION
     Dosage: SBDE
     Route: 059
     Dates: start: 20110801, end: 20111101

REACTIONS (3)
  - ABORTION SPONTANEOUS [None]
  - PREGNANCY WITH IMPLANT CONTRACEPTIVE [None]
  - PATERNAL DRUGS AFFECTING FOETUS [None]
